FAERS Safety Report 7494967-5 (Version None)
Quarter: 2011Q2

REPORT INFORMATION
  Report Type: 
  Country: None (occurrence: None)
  Receive Date: 20110520
  Receipt Date: 20110422
  Transmission Date: 20111010
  Serious: No
  Sender: FDA-Public Use
  Company Number: US-BAYER-2011-035908

PATIENT
  Age: 90 Year
  Sex: Female

DRUGS (2)
  1. ALEVE (CAPLET) [Suspect]
     Indication: ARTHRITIS
     Dosage: 440 MG, ONCE, BOTTLE COUNT 50S
     Route: 048
  2. COUMADIN [Concomitant]
     Dosage: UNK

REACTIONS (2)
  - BURNING SENSATION [None]
  - PRURITUS GENERALISED [None]
